FAERS Safety Report 8215898-9 (Version None)
Quarter: 2012Q1

REPORT INFORMATION
  Report Type: 
  Country: None (occurrence: None)
  Receive Date: 20120316
  Receipt Date: 20120309
  Transmission Date: 20120608
  Serious: Yes (Other)
  Sender: FDA-Public Use
  Company Number: US-JNJFOC-20120306643

PATIENT
  Sex: Male

DRUGS (2)
  1. FENTANYL-100 [Suspect]
     Indication: PRODUCT USED FOR UNKNOWN INDICATION
     Route: 062
  2. DURAGESIC-100 [Suspect]
     Indication: PRODUCT USED FOR UNKNOWN INDICATION
     Route: 062

REACTIONS (6)
  - RASH [None]
  - PAIN [None]
  - PRODUCT QUALITY ISSUE [None]
  - SURGERY [None]
  - GENERAL PHYSICAL CONDITION ABNORMAL [None]
  - DETOXIFICATION [None]
